FAERS Safety Report 19818358 (Version 1)
Quarter: 2021Q3

REPORT INFORMATION
  Report Type: Spontaneous
  Country: CA (occurrence: CA)
  Receive Date: 20210911
  Receipt Date: 20210911
  Transmission Date: 20211014
  Serious: Yes (Life-Threatening, Hospitalization, Other)
  Sender: FDA-Public Use
  Company Number: CA-TEVA-2021-CA-1950463

PATIENT
  Age: 8 Month
  Sex: Male
  Weight: 6 kg

DRUGS (17)
  1. CARBOPLATIN. [Suspect]
     Active Substance: CARBOPLATIN
     Indication: RHABDOID TUMOUR
     Route: 042
  2. SPIRONOLACTONE. [Concomitant]
     Active Substance: SPIRONOLACTONE
  3. VANCOMYCIN [Concomitant]
     Active Substance: VANCOMYCIN
  4. PENTAMIDINE ISETHIONATE INJ 300MG/VIAL BP [Concomitant]
  5. PREVACID [Concomitant]
     Active Substance: LANSOPRAZOLE
  6. ETOPOSIDE. [Suspect]
     Active Substance: ETOPOSIDE
     Indication: RHABDOID TUMOUR
     Route: 042
  7. MESNA. [Concomitant]
     Active Substance: MESNA
  8. METOCLOPRAMIDE. [Concomitant]
     Active Substance: METOCLOPRAMIDE
  9. ONDANSETRON [Concomitant]
     Active Substance: ONDANSETRON
  10. ACYCLOVIR. [Concomitant]
     Active Substance: ACYCLOVIR
  11. CHOLECALCIFEROL [Concomitant]
     Active Substance: CHOLECALCIFEROL
  12. DEXAMETHASONE. [Concomitant]
     Active Substance: DEXAMETHASONE
     Route: 065
  13. MESNA. [Concomitant]
     Active Substance: MESNA
  14. BETAMETHASONE. [Concomitant]
     Active Substance: BETAMETHASONE
  15. IFOSFAMIDE FOR INJECTION, USP [Suspect]
     Active Substance: IFOSFAMIDE
     Indication: RHABDOID TUMOUR
     Route: 042
  16. MAGNESIUM SULFATE. [Concomitant]
     Active Substance: MAGNESIUM SULFATE
  17. VALACYCLOVIR [Concomitant]
     Active Substance: VALACYCLOVIR HYDROCHLORIDE

REACTIONS (1)
  - Febrile neutropenia [Recovered/Resolved]
